FAERS Safety Report 4685722-X (Version None)
Quarter: 2005Q2

REPORT INFORMATION
  Report Type: 
  Country: None (occurrence: None)
  Receive Date: 20050608
  Receipt Date: 20050524
  Transmission Date: 20051028
  Serious: Yes (Other)
  Sender: FDA-Public Use
  Company Number: 2005071922

PATIENT
  Sex: Male
  Weight: 68.0396 kg

DRUGS (2)
  1. BENADRYL [Suspect]
     Indication: RASH
     Dosage: 2 TABLETS ONCE ORAL
     Route: 048
     Dates: start: 20050506, end: 20050506
  2. VALPROATE SODIUM [Concomitant]

REACTIONS (8)
  - ANXIETY [None]
  - BLOOD PRESSURE INCREASED [None]
  - CONVULSION [None]
  - DIZZINESS [None]
  - HEART RATE INCREASED [None]
  - HYPERHIDROSIS [None]
  - LETHARGY [None]
  - TREMOR [None]
